FAERS Safety Report 5668599-5 (Version None)
Quarter: 2008Q1

REPORT INFORMATION
  Report Type: 
  Country: None (occurrence: None)
  Receive Date: 20080315
  Receipt Date: 20080229
  Transmission Date: 20080703
  Serious: No
  Sender: FDA-Public Use
  Company Number: US-ABBOTT-08P-163-0440469-00

PATIENT
  Sex: Female
  Weight: 88.53 kg

DRUGS (5)
  1. HUMIRA [Suspect]
     Indication: RHEUMATOID ARTHRITIS
     Route: 058
     Dates: start: 20060101
  2. METHOTREXATE [Concomitant]
     Indication: RHEUMATOID ARTHRITIS
     Route: 048
     Dates: start: 20060101
  3. LOVASTATIN [Concomitant]
     Indication: BLOOD CHOLESTEROL INCREASED
     Route: 048
     Dates: start: 20000101
  4. SERETIDE [Concomitant]
     Indication: ASTHMA
     Route: 048
     Dates: start: 20000101
  5. PROAIR HFA [Concomitant]
     Indication: ASTHMA
     Route: 048
     Dates: start: 20000101

REACTIONS (1)
  - ACCIDENTAL EXPOSURE [None]
